FAERS Safety Report 7116144-X (Version None)
Quarter: 2010Q4

REPORT INFORMATION
  Report Type: 
  Country: None (occurrence: None)
  Receive Date: 20101122
  Receipt Date: 20101109
  Transmission Date: 20110411
  Serious: Yes (Other)
  Sender: FDA-Public Use
  Company Number: PHHY2010CA76674

PATIENT
  Sex: Male

DRUGS (1)
  1. CLOZARIL [Suspect]
     Indication: MOVEMENT DISORDER
     Dosage: 400 MG, QD

REACTIONS (3)
  - BENIGN NEOPLASM OF ADRENAL GLAND [None]
  - BLOOD PRESSURE DIASTOLIC INCREASED [None]
  - CONVULSION [None]
